FAERS Safety Report 8385533-8 (Version None)
Quarter: 2012Q2

REPORT INFORMATION
  Report Type: 
  Country: None (occurrence: None)
  Receive Date: 20120525
  Receipt Date: 20120518
  Transmission Date: 20120825
  Serious: No
  Sender: FDA-Public Use
  Company Number: US-BIOGENIDEC-2012BI018197

PATIENT
  Age: 60 Year
  Sex: Female

DRUGS (2)
  1. TRAMADOL HYDROCHLORIDE [Concomitant]
     Indication: PAIN IN EXTREMITY
  2. TYSABRI [Suspect]
     Indication: MULTIPLE SCLEROSIS
     Route: 042
     Dates: start: 20080827

REACTIONS (3)
  - PAIN IN EXTREMITY [None]
  - SPONDYLOLISTHESIS [None]
  - SPINAL COLUMN STENOSIS [None]
